FAERS Safety Report 7865666-2 (Version None)
Quarter: 2011Q4

REPORT INFORMATION
  Report Type: 
  Country: None (occurrence: None)
  Receive Date: 20111028
  Receipt Date: 20110203
  Transmission Date: 20120403
  Serious: No
  Sender: FDA-Public Use
  Company Number: US-GLAXOSMITHKLINE-A0911700A

PATIENT
  Age: 77 Year
  Sex: Female

DRUGS (9)
  1. TEARS (OTC) [Concomitant]
  2. ADVAIR DISKUS 100/50 [Suspect]
     Indication: EMPHYSEMA
     Dosage: 1PUFF TWICE PER DAY
     Route: 055
     Dates: start: 20101101
  3. VITAMIN D [Concomitant]
  4. ZYRTEC [Concomitant]
  5. CALCIUM CARBONATE [Concomitant]
  6. ASPIRIN [Concomitant]
  7. QUININE SULFATE [Concomitant]
  8. MULTI-VITAMIN [Concomitant]
  9. FISH OIL [Concomitant]

REACTIONS (2)
  - INSOMNIA [None]
  - MUSCLE SPASMS [None]
